FAERS Safety Report 18339100 (Version 1)
Quarter: 2020Q4

REPORT INFORMATION
  Report Type: Spontaneous
  Country: US (occurrence: US)
  Receive Date: 20201002
  Receipt Date: 20201002
  Transmission Date: 20210113
  Serious: Yes (Life-Threatening, Other)
  Sender: FDA-Public Use
  Company Number: None

PATIENT
  Age: 28 Year
  Sex: Female
  Weight: 86.18 kg

DRUGS (1)
  1. NEXPLANON [Suspect]
     Active Substance: ETONOGESTREL
     Dates: start: 20191219, end: 20200923

REACTIONS (12)
  - Nerve injury [None]
  - Feeling hot [None]
  - Device breakage [None]
  - Loss of consciousness [None]
  - Hypoaesthesia [None]
  - Hypertension [None]
  - Implant site haemorrhage [None]
  - Nausea [None]
  - Device dislocation [None]
  - Depression [None]
  - Headache [None]
  - Pain [None]

NARRATIVE: CASE EVENT DATE: 20200923
